FAERS Safety Report 10522944 (Version 2)
Quarter: 2014Q4

REPORT INFORMATION
  Report Type: Spontaneous
  Country: US (occurrence: US)
  Receive Date: 20141016
  Receipt Date: 20141016
  Transmission Date: 20150528
  Serious: Yes (Hospitalization, Other)
  Sender: FDA-Public Use
  Company Number: US-GLAXOSMITHKLINE-A0870858A

PATIENT
  Sex: Female

DRUGS (1)
  1. AVANDIA [Suspect]
     Active Substance: ROSIGLITAZONE MALEATE
     Indication: TYPE 2 DIABETES MELLITUS
     Dosage: 4 MG, QD
     Route: 048
     Dates: start: 20020208, end: 200607

REACTIONS (5)
  - Cardiac failure congestive [Unknown]
  - Hypertensive heart disease [Unknown]
  - Myocardial infarction [Not Recovered/Not Resolved]
  - Cardiac operation [Unknown]
  - Coronary artery bypass [Unknown]
